FAERS Safety Report 4831499-4 (Version None)
Quarter: 2005Q4

REPORT INFORMATION
  Report Type: 
  Country: None (occurrence: None)
  Receive Date: 20051116
  Receipt Date: 20051102
  Transmission Date: 20060501
  Serious: Yes (Death)
  Sender: FDA-Public Use
  Company Number: 2005-DE-02334GD

PATIENT
  Sex: 0

DRUGS (12)
  1. PARACETAMOL (PARACETAMOL) [Suspect]
  2. OXAZEPAM [Suspect]
  3. DIAZEPAM [Suspect]
  4. DOXYLAMINE SUCCINATE [Suspect]
  5. MORPHINE (MORPHNINE) [Suspect]
  6. OXYCODONE HCL [Suspect]
  7. SALICYLATES (SALICYLATES) [Suspect]
  8. PROMETHAZINE [Suspect]
  9. HEROIN (DIAMORPHINE) [Suspect]
  10. BUPROPION HCL [Suspect]
  11. CARBAMAZEPINE [Suspect]
  12. METOPROLOL TARTRATE [Suspect]

REACTIONS (3)
  - DRUG ABUSER [None]
  - DRUG INTERACTION [None]
  - DRUG TOXICITY [None]
